FAERS Safety Report 16191852 (Version 1)
Quarter: 2019Q2

REPORT INFORMATION
  Report Type: Spontaneous
  Country: DE (occurrence: DE)
  Receive Date: 20190412
  Receipt Date: 20190412
  Transmission Date: 20190711
  Serious: Yes (Other)
  Sender: FDA-Public Use
  Company Number: DE-BIOGEN-2019BI00721248

PATIENT
  Age: 55 Year
  Sex: Female
  Weight: 63 kg

DRUGS (3)
  1. PARACETAMOL AL 1000 Z?PFCHEN [Concomitant]
     Indication: PRODUCT USED FOR UNKNOWN INDICATION
     Route: 054
  2. AVONEX [Suspect]
     Active Substance: INTERFERON BETA-1A
     Indication: MULTIPLE SCLEROSIS
     Route: 030
     Dates: start: 2001, end: 20190223
  3. DOPPELHERZ MAGNESIUM [Concomitant]
     Indication: PRODUCT USED FOR UNKNOWN INDICATION
     Route: 065

REACTIONS (2)
  - Osteochondrosis [Not Recovered/Not Resolved]
  - Bone marrow oedema [Not Recovered/Not Resolved]

NARRATIVE: CASE EVENT DATE: 201810
